FAERS Safety Report 19257278 (Version 2)
Quarter: 2021Q2

REPORT INFORMATION
  Report Type: Spontaneous
  Country: US (occurrence: US)
  Receive Date: 20210514
  Receipt Date: 20210527
  Transmission Date: 20210717
  Serious: No
  Sender: FDA-Public Use
  Company Number: US-LUPIN PHARMACEUTICALS INC.-2021-06735

PATIENT
  Sex: Female

DRUGS (4)
  1. BUDESONIDE INHALATION SUSPENSION, 0.5 MG/2 ML [Suspect]
     Active Substance: BUDESONIDE
     Indication: CHRONIC OBSTRUCTIVE PULMONARY DISEASE
     Dosage: UNK UNK, BID (OVER 2 YEARS)
     Route: 045
  2. BUDESONIDE INHALATION SUSPENSION, 0.5 MG/2 ML [Suspect]
     Active Substance: BUDESONIDE
     Dosage: UNK UNK, BID
     Route: 045
  3. BUDESONIDE INHALATION SUSPENSION, 0.5 MG/2 ML [Suspect]
     Active Substance: BUDESONIDE
     Dosage: UNK UNK, BID
     Route: 045
  4. BUDESONIDE INHALATION SUSPENSION, 0.5 MG/2 ML [Suspect]
     Active Substance: BUDESONIDE
     Dosage: UNK UNK, BID
     Route: 045

REACTIONS (6)
  - Product quality issue [Unknown]
  - Product residue present [Unknown]
  - Device occlusion [Unknown]
  - Product physical consistency issue [Unknown]
  - Dysphonia [Unknown]
  - Condition aggravated [Unknown]
